FAERS Safety Report 7104895-2 (Version None)
Quarter: 2010Q4

REPORT INFORMATION
  Report Type: 
  Country: None (occurrence: None)
  Receive Date: 20101116
  Receipt Date: 20101103
  Transmission Date: 20110411
  Serious: Yes (Hospitalization, Other)
  Sender: FDA-Public Use
  Company Number: MX-ELI_LILLY_AND_COMPANY-MX201007007212

PATIENT
  Sex: Female
  Weight: 53 kg

DRUGS (9)
  1. HUMALOG [Suspect]
     Indication: TYPE 1 DIABETES MELLITUS
     Dosage: 2 IU, EACH MORNING
     Route: 058
  2. LANTUS [Concomitant]
     Dosage: 20 IU, UNKNOWN
     Route: 065
  3. LEVOTHYROXINE [Concomitant]
     Dosage: 150 MG, DAILY (1/D)
     Route: 065
  4. NIFEDIPINE [Concomitant]
     Indication: HYPERTENSION
     Dosage: 30 MG, DAILY (1/D)
     Route: 065
     Dates: end: 20100101
  5. CALCIUM [Concomitant]
     Indication: PREGNANCY
     Dosage: UNK, UNKNOWN
     Route: 065
     Dates: end: 20100101
  6. IRON [Concomitant]
     Indication: PREGNANCY
     Dosage: UNK, UNKNOWN
     Route: 065
  7. FOLIC ACID [Concomitant]
     Dosage: UNK, UNKNOWN
     Route: 065
  8. INSULIN NPH                        /01223208/ [Concomitant]
     Dosage: UNK, UNKNOWN
     Route: 065
  9. ENALAPRIL MALEATE [Concomitant]
     Indication: HYPERTENSION
     Dosage: 1 D/F, DAILY (1/D)
     Dates: start: 20100101

REACTIONS (5)
  - CELLULITIS [None]
  - DRUG EXPOSURE DURING PREGNANCY [None]
  - HYPERGLYCAEMIA [None]
  - HYPOGLYCAEMIA [None]
  - PRE-ECLAMPSIA [None]
